FAERS Safety Report 6222208-5 (Version None)
Quarter: 2009Q2

REPORT INFORMATION
  Report Type: 
  Country: None (occurrence: None)
  Receive Date: 20090611
  Receipt Date: 20090529
  Transmission Date: 20091009
  Serious: Yes (Other)
  Sender: FDA-Public Use
  Company Number: PHHY2009NL06564

PATIENT
  Sex: Male

DRUGS (5)
  1. CLOZAPINE [Suspect]
     Dosage: 200 MG PER DAY
     Route: 048
  2. CLOZAPINE [Suspect]
     Dosage: 150 MG/DAY
     Route: 048
     Dates: start: 20090206, end: 20090220
  3. CARBAMAZEPINE [Concomitant]
     Dosage: 1DD2 600MG
     Route: 048
  4. PRIMIDONE [Concomitant]
     Dosage: 2DD50MG
  5. LORAZEPAM [Concomitant]
     Dosage: 2-3 MG

REACTIONS (9)
  - ASTHENIA [None]
  - EOSINOPHIL PERCENTAGE INCREASED [None]
  - FALL [None]
  - OEDEMA PERIPHERAL [None]
  - PETIT MAL EPILEPSY [None]
  - POSTURE ABNORMAL [None]
  - RED BLOOD CELL SEDIMENTATION RATE INCREASED [None]
  - SWELLING FACE [None]
  - WEIGHT INCREASED [None]
